FAERS Safety Report 25396471 (Version 1)
Quarter: 2025Q2

REPORT INFORMATION
  Report Type: Spontaneous
  Country: PL (occurrence: None)
  Receive Date: 20250603
  Receipt Date: 20250603
  Transmission Date: 20250717
  Serious: Yes (Life-Threatening, Disabling)
  Sender: FDA-CTU
  Company Number: None

PATIENT
  Age: 28 Year
  Sex: Female
  Weight: 48 kg

DRUGS (1)
  1. FLUOXETINE HYDROCHLORIDE [Suspect]
     Active Substance: FLUOXETINE HYDROCHLORIDE
     Indication: Depression
     Route: 048

REACTIONS (13)
  - Hypoaesthesia [None]
  - Sexual dysfunction [None]
  - Emotional disorder [None]
  - Hypohidrosis [None]
  - Sensory loss [None]
  - Muscle disorder [None]
  - Myalgia [None]
  - Skin disorder [None]
  - Sensory disturbance [None]
  - Head discomfort [None]
  - Disturbance in attention [None]
  - Impaired quality of life [None]
  - Sexual dysfunction [None]
